APPROVED DRUG PRODUCT: ONDANSETRON HYDROCHLORIDE
Active Ingredient: ONDANSETRON HYDROCHLORIDE
Strength: EQ 2MG BASE/ML
Dosage Form/Route: INJECTABLE;INJECTION
Application: A079224 | Product #001 | TE Code: AP
Applicant: GLAND PHARMA LTD
Approved: Sep 25, 2009 | RLD: No | RS: No | Type: RX